FAERS Safety Report 5151196-8 (Version None)
Quarter: 2006Q4

REPORT INFORMATION
  Report Type: 
  Country: None (occurrence: None)
  Receive Date: 20061113
  Receipt Date: 20061113
  Transmission Date: 20070319
  Serious: Yes (Life-Threatening, Hospitalization, Disabling, Other)
  Sender: FDA-Public Use
  Company Number: None

PATIENT
  Sex: Male
  Weight: 72.5755 kg

DRUGS (6)
  1. LAMICTAL [Suspect]
     Indication: ANXIETY
     Dosage: 100 MG
     Dates: start: 20050601, end: 20050720
  2. LAMICTAL [Suspect]
     Indication: DEPRESSION
     Dosage: 100 MG
     Dates: start: 20050601, end: 20050720
  3. GEODON [Suspect]
     Indication: ANXIETY
     Dosage: 40 MG
     Dates: start: 20050601, end: 20050720
  4. GEODON [Suspect]
     Indication: DEPRESSION
     Dosage: 40 MG
     Dates: start: 20050601, end: 20050720
  5. LEXAPRO [Suspect]
     Indication: ANXIETY
     Dosage: 20 MG
     Dates: start: 20050601, end: 20050720
  6. LEXAPRO [Suspect]
     Indication: DEPRESSION
     Dosage: 20 MG
     Dates: start: 20050601, end: 20050720

REACTIONS (5)
  - BACK PAIN [None]
  - GLAUCOMA [None]
  - PRURITUS [None]
  - RASH [None]
  - SWELLING FACE [None]
